FAERS Safety Report 25091923 (Version 1)
Quarter: 2025Q1

REPORT INFORMATION
  Report Type: Spontaneous
  Country: PL (occurrence: PL)
  Receive Date: 20250318
  Receipt Date: 20250318
  Transmission Date: 20250409
  Serious: No
  Sender: SANDOZ
  Company Number: PL-SANDOZ-SDZ2025PL013121

PATIENT

DRUGS (1)
  1. OMNITROPE [Suspect]
     Active Substance: SOMATROPIN
     Indication: Product used for unknown indication
     Route: 065

REACTIONS (3)
  - Incorrect dose administered by device [Unknown]
  - Device breakage [Unknown]
  - Device issue [Unknown]
